FAERS Safety Report 18089202 (Version 3)
Quarter: 2020Q3

REPORT INFORMATION
  Report Type: Spontaneous
  Country: US (occurrence: US)
  Receive Date: 20200729
  Receipt Date: 20200826
  Transmission Date: 20201103
  Serious: Yes (Hospitalization, Other)
  Sender: FDA-Public Use
  Company Number: US-MALLINCKRODT-T202003630

PATIENT
  Age: 1 Year
  Sex: Male
  Weight: 8 kg

DRUGS (4)
  1. H.P. ACTHAR [Suspect]
     Active Substance: CORTICOTROPIN
     Indication: INFANTILE SPASMS
     Dosage: UNK
     Route: 065
     Dates: start: 202006, end: 2020
  2. H.P. ACTHAR [Suspect]
     Active Substance: CORTICOTROPIN
     Dosage: UNK
     Route: 065
     Dates: start: 2020, end: 20200819
  3. H.P. ACTHAR [Suspect]
     Active Substance: CORTICOTROPIN
     Dosage: 0.05 MILLILITER, QD FOR 3 DAYS
     Route: 030
     Dates: start: 20200714, end: 2020
  4. KEPPRA [Concomitant]
     Active Substance: LEVETIRACETAM
     Indication: PRODUCT USED FOR UNKNOWN INDICATION
     Dosage: 2 MILLILITER, BID
     Route: 065

REACTIONS (5)
  - Infantile spasms [Recovered/Resolved]
  - Peripheral swelling [Unknown]
  - Therapeutic product effect incomplete [Recovered/Resolved]
  - Condition aggravated [Unknown]
  - General physical condition abnormal [Unknown]

NARRATIVE: CASE EVENT DATE: 2020
